FAERS Safety Report 7571900-9 (Version None)
Quarter: 2011Q2

REPORT INFORMATION
  Report Type: 
  Country: None (occurrence: None)
  Receive Date: 20110624
  Receipt Date: 20100825
  Transmission Date: 20111010
  Serious: No
  Sender: FDA-Public Use
  Company Number: A0877696A

PATIENT
  Age: 7 Year
  Sex: Female

DRUGS (3)
  1. BENADRYL [Concomitant]
  2. CLARITIN [Concomitant]
  3. VERAMYST [Suspect]
     Dosage: 2SPR PER DAY
     Route: 045
     Dates: start: 20100811, end: 20100817

REACTIONS (1)
  - HEADACHE [None]
